FAERS Safety Report 6845821-0 (Version None)
Quarter: 2010Q3

REPORT INFORMATION
  Report Type: 
  Country: None (occurrence: None)
  Receive Date: 20100715
  Receipt Date: 20070917
  Transmission Date: 20110219
  Serious: No
  Sender: FDA-Public Use
  Company Number: US-PFIZER INC-2007071824

PATIENT
  Sex: Male
  Weight: 84.4 kg

DRUGS (6)
  1. CHANTIX [Suspect]
     Indication: SMOKING CESSATION THERAPY
     Route: 048
     Dates: start: 20070501, end: 20070822
  2. NAPROXEN [Suspect]
  3. TRAMADOL HCL [Suspect]
  4. FLONASE [Concomitant]
  5. NIACIN [Concomitant]
  6. LIPITOR [Concomitant]

REACTIONS (2)
  - ABDOMINAL PAIN UPPER [None]
  - MALAISE [None]
